FAERS Safety Report 9731199 (Version 1)
Quarter: 2013Q4

REPORT INFORMATION
  Report Type: Spontaneous
  Country: CA (occurrence: CA)
  Receive Date: 20131203
  Receipt Date: 20131203
  Transmission Date: 20140711
  Serious: Yes (Hospitalization)
  Sender: FDA-Public Use
  Company Number: CA-B.I. PHARMACEUTICALS,INC./RIDGEFIELD-2013-BI-39283CN

PATIENT
  Age: 48 Year
  Sex: Male

DRUGS (5)
  1. PRADAX [Suspect]
     Dosage: 300 MG
     Route: 048
  2. ATORVASTATIN CALCIUM [Concomitant]
  3. BISOPROLOL [Concomitant]
  4. FUROSEMIDE [Concomitant]
  5. TERAZOSIN [Concomitant]

REACTIONS (1)
  - Transient ischaemic attack [Unknown]
